FAERS Safety Report 10468492 (Version 2)
Quarter: 2014Q3

REPORT INFORMATION
  Report Type: Spontaneous
  Country: US (occurrence: US)
  Receive Date: 20140922
  Receipt Date: 20140922
  Transmission Date: 20150326
  Serious: No
  Sender: FDA-Public Use
  Company Number: US-ALLERGAN-1308845US

PATIENT
  Age: 69 Year
  Sex: Female

DRUGS (3)
  1. LASTACAFT [Suspect]
     Active Substance: ALCAFTADINE
     Indication: ASTHENOPIA
     Dosage: 2 GTT, QAM
     Route: 047
  2. SYSTANE BALANCE [Concomitant]
     Active Substance: PROPYLENE GLYCOL
     Indication: PRODUCT USED FOR UNKNOWN INDICATION
     Dosage: UNK UNK, PRN
     Route: 047
  3. UNKNOWN MEDICATION [Concomitant]
     Active Substance: UNSPECIFIED INGREDIENT
     Indication: POLLAKIURIA
     Dosage: UNK

REACTIONS (3)
  - Asthenopia [Recovered/Resolved]
  - Off label use [Unknown]
  - Constipation [Not Recovered/Not Resolved]
